FAERS Safety Report 9363406 (Version 3)
Quarter: 2014Q2

REPORT INFORMATION
  Report Type: Spontaneous
  Country: US (occurrence: US)
  Receive Date: 20130624
  Receipt Date: 20140423
  Transmission Date: 20141212
  Serious: Yes (Hospitalization)
  Sender: FDA-Public Use
  Company Number: US-BAYER-2013-074923

PATIENT
  Age: 24 Year
  Sex: Female

DRUGS (4)
  1. MIRENA [Suspect]
     Indication: CONTRACEPTION
     Dosage: 20 MCG/24HR, CONT
     Route: 015
     Dates: start: 20100222, end: 20130415
  2. MIRENA [Suspect]
     Indication: MENORRHAGIA
  3. FLAGYL [Concomitant]
     Dosage: 500 MG, BID
  4. FLUCONAZOLE [Concomitant]
     Dosage: 150 MG, UNK
     Route: 048

REACTIONS (5)
  - Uterine perforation [None]
  - Injury [None]
  - Pain [None]
  - Device difficult to use [None]
  - Emotional distress [None]
